FAERS Safety Report 12721797 (Version 2)
Quarter: 2016Q4

REPORT INFORMATION
  Report Type: Report from Study
  Country: CA (occurrence: CA)
  Receive Date: 20160907
  Receipt Date: 20161026
  Transmission Date: 20170207
  Serious: Yes (Other)
  Sender: FDA-Public Use
  Company Number: CA-JNJFOC-20160902779

PATIENT
  Age: 72 Year
  Sex: Female
  Weight: 70 kg

DRUGS (4)
  1. METHOTREXATE. [Concomitant]
     Active Substance: METHOTREXATE
     Route: 058
  2. DICETEL [Concomitant]
     Active Substance: PINAVERIUM BROMIDE
     Route: 065
  3. REMICADE [Suspect]
     Active Substance: INFLIXIMAB
     Indication: CROHN^S DISEASE
     Route: 042
     Dates: start: 20101102
  4. REMICADE [Suspect]
     Active Substance: INFLIXIMAB
     Indication: CROHN^S DISEASE
     Route: 042
     Dates: start: 20080623

REACTIONS (2)
  - Ureteral neoplasm [Unknown]
  - Blood urine present [Unknown]

NARRATIVE: CASE EVENT DATE: 201606
